FAERS Safety Report 15619337 (Version 1)
Quarter: 2018Q4

REPORT INFORMATION
  Report Type: Report from Study
  Country: ES (occurrence: ES)
  Receive Date: 20181115
  Receipt Date: 20181115
  Transmission Date: 20190205
  Serious: Yes (Hospitalization)
  Sender: FDA-Public Use
  Company Number: ES-ACCORD-092322

PATIENT
  Age: 4 Year
  Sex: Male

DRUGS (4)
  1. SULFAMETHOXAZOLE/TRIMETHOPRIM [Concomitant]
     Active Substance: SULFAMETHOXAZOLE\TRIMETHOPRIM
     Indication: OPPORTUNISTIC INFECTION PROPHYLAXIS
     Route: 048
     Dates: start: 201611
  2. METHOTREXATE. [Suspect]
     Active Substance: METHOTREXATE
     Indication: ACUTE LYMPHOCYTIC LEUKAEMIA
     Route: 048
     Dates: start: 20180314, end: 20180419
  3. MERCAPTOPURINE/MERCAPTOPURINE ANHYDROUS [Interacting]
     Active Substance: MERCAPTOPURINE
     Indication: ACUTE LYMPHOCYTIC LEUKAEMIA
     Route: 048
     Dates: start: 20180314, end: 20180419
  4. ZOVIRAX [Concomitant]
     Active Substance: ACYCLOVIR
     Indication: OPPORTUNISTIC INFECTION PROPHYLAXIS
     Dosage: 400 MG / 5 ML ORAL SUSPENSION, 1 BOTTLE OF 200 ML
     Route: 048
     Dates: start: 201611

REACTIONS (3)
  - Drug interaction [Unknown]
  - Oral herpes [Recovered/Resolved]
  - Respiratory tract infection [Recovered/Resolved]

NARRATIVE: CASE EVENT DATE: 20180404
